FAERS Safety Report 21423002 (Version 1)
Quarter: 2022Q4

REPORT INFORMATION
  Report Type: Spontaneous
  Country: NL (occurrence: NL)
  Receive Date: 20221007
  Receipt Date: 20221007
  Transmission Date: 20230112
  Serious: Yes (Other)
  Sender: FDA-Public Use
  Company Number: None

PATIENT
  Sex: Female
  Weight: 73 kg

DRUGS (2)
  1. CLINDAMYCIN [Suspect]
     Active Substance: CLINDAMYCIN
     Indication: Bacterial infection
     Dosage: 1 CAPSULE PER DAY FOR 5 DAYS
     Route: 065
     Dates: start: 20220829
  2. DESLORATADINE [Concomitant]
     Active Substance: DESLORATADINE
     Dosage: TABLET, 5 MG (MILLIGRAM)
     Route: 065

REACTIONS (2)
  - Metal poisoning [Not Recovered/Not Resolved]
  - Diarrhoea [Not Recovered/Not Resolved]
